FAERS Safety Report 23227756 (Version 1)
Quarter: 2023Q4

REPORT INFORMATION
  Report Type: Spontaneous
  Country: US (occurrence: US)
  Receive Date: 20231125
  Receipt Date: 20231125
  Transmission Date: 20240110
  Serious: No
  Sender: FDA-Public Use
  Company Number: US-AMGEN-USASP2023209115

PATIENT

DRUGS (1)
  1. NPLATE [Suspect]
     Active Substance: ROMIPLOSTIM
     Indication: Radiation thrombocytopenia
     Dosage: 10 MICROGRAM/KILOGRAM, RECEIVED 4 DOSES, APPROXIMATELY 7 DAYS TO 2 WEEKS APART
     Route: 065

REACTIONS (1)
  - Platelet count abnormal [Unknown]
